FAERS Safety Report 4360424-8 (Version None)
Quarter: 2004Q2

REPORT INFORMATION
  Report Type: 
  Country: None (occurrence: None)
  Receive Date: 20040514
  Receipt Date: 20021017
  Transmission Date: 20050107
  Serious: Yes (Life-Threatening)
  Sender: FDA-Public Use
  Company Number: 2002-BP-05081BP

PATIENT
  Age: 57 Year
  Sex: Male

DRUGS (12)
  1. MICARDIS [Suspect]
     Indication: CARDIOVASCULAR DISORDER
     Route: 048
     Dates: start: 20020101, end: 20020101
  2. MICARDIS [Suspect]
     Indication: CEREBROVASCULAR ACCIDENT PROPHYLAXIS
     Route: 048
     Dates: start: 20020101, end: 20020101
  3. MICARDIS [Suspect]
     Indication: MYOCARDIAL INFARCTION
     Route: 048
     Dates: start: 20020101, end: 20020101
  4. MICARDIS [Suspect]
     Indication: PROPHYLAXIS
     Route: 048
     Dates: start: 20020101, end: 20020101
  5. RAMIPRIL [Suspect]
     Indication: CARDIOVASCULAR DISORDER
     Dates: start: 20020101, end: 20020101
  6. RAMIPRIL [Suspect]
     Indication: CEREBROVASCULAR ACCIDENT PROPHYLAXIS
     Dates: start: 20020101, end: 20020101
  7. RAMIPRIL [Suspect]
     Indication: MYOCARDIAL INFARCTION
     Dates: start: 20020101, end: 20020101
  8. RAMIPRIL [Suspect]
     Indication: PROPHYLAXIS
     Dates: start: 20020101, end: 20020101
  9. CLOPIDOGREL BISULFATE [Concomitant]
  10. DILTIAZEPAM (DILTIAZEPAM) [Concomitant]
  11. SIMVASTATIN [Concomitant]
  12. LANSOPRAZOLE [Concomitant]

REACTIONS (2)
  - HYPOTENSION [None]
  - SYNCOPE [None]
